FAERS Safety Report 5675733-X (Version None)
Quarter: 2008Q1

REPORT INFORMATION
  Report Type: 
  Country: None (occurrence: None)
  Receive Date: 20080321
  Receipt Date: 20080306
  Transmission Date: 20080703
  Serious: Yes (Death)
  Sender: FDA-Public Use
  Company Number: BR-BAYER-200812041LA

PATIENT
  Age: 85 Year
  Sex: Female

DRUGS (1)
  1. CIPRO [Suspect]
     Indication: PAINFUL RESPIRATION
     Route: 048
     Dates: start: 20070101, end: 20070322

REACTIONS (1)
  - DEATH [None]
